FAERS Safety Report 4804094-0 (Version None)
Quarter: 2005Q4

REPORT INFORMATION
  Report Type: 
  Country: None (occurrence: None)
  Receive Date: 20051014
  Receipt Date: 20051007
  Transmission Date: 20060501
  Serious: Yes (Hospitalization, Other)
  Sender: FDA-Public Use
  Company Number: 234772K05USA

PATIENT
  Age: 56 Year
  Sex: Female

DRUGS (2)
  1. REBIF (INTERFERON BETA) [Suspect]
     Indication: MULTIPLE SCLEROSIS
     Dosage: SEE IMAGE
     Dates: start: 20021028, end: 20050101
  2. REBIF (INTERFERON BETA) [Suspect]
     Indication: MULTIPLE SCLEROSIS
     Dosage: SEE IMAGE
     Dates: start: 20050901

REACTIONS (6)
  - ARTHRALGIA [None]
  - BLOOD PARATHYROID HORMONE INCREASED [None]
  - DIFFICULTY IN WALKING [None]
  - FATIGUE [None]
  - INCREASED TENDENCY TO BRUISE [None]
  - INJECTION SITE URTICARIA [None]
